FAERS Safety Report 7629179-5 (Version None)
Quarter: 2011Q3

REPORT INFORMATION
  Report Type: 
  Country: None (occurrence: None)
  Receive Date: 20110722
  Receipt Date: 20110711
  Transmission Date: 20111222
  Serious: Yes (Hospitalization, Other)
  Sender: FDA-Public Use
  Company Number: PHFR2011IE01480

PATIENT
  Sex: Male

DRUGS (5)
  1. VALPROATE SODIUM [Concomitant]
     Dosage: 200 MG, BID
     Route: 048
  2. AMISULPRIDE [Suspect]
     Indication: SCHIZOPHRENIA
     Dosage: 500 MG, UNK
     Route: 048
     Dates: end: 20110510
  3. CLOZAPINE [Suspect]
     Dosage: 300 MG, BID
     Route: 048
  4. CLOZAPINE [Suspect]
     Indication: SCHIZOPHRENIA
     Dosage: 775 MG, QD
     Route: 048
     Dates: start: 20060425
  5. VALPROATE SODIUM [Concomitant]

REACTIONS (8)
  - EXTRAPYRAMIDAL DISORDER [None]
  - VISUAL IMPAIRMENT [None]
  - EYE MOVEMENT DISORDER [None]
  - DYSTONIA [None]
  - ANTIPSYCHOTIC DRUG LEVEL ABOVE THERAPEUTIC [None]
  - OCULOGYRIC CRISIS [None]
  - DISTURBANCE IN ATTENTION [None]
  - SEIZURE LIKE PHENOMENA [None]
